FAERS Safety Report 7812520-8 (Version None)
Quarter: 2011Q4

REPORT INFORMATION
  Report Type: 
  Country: None (occurrence: None)
  Receive Date: 20111013
  Receipt Date: 20111003
  Transmission Date: 20120403
  Serious: Yes (Hospitalization)
  Sender: FDA-Public Use
  Company Number: US-BAYER-2010-005886

PATIENT
  Age: 35 Year
  Sex: Female
  Weight: 119 kg

DRUGS (3)
  1. YAZ [Suspect]
     Indication: PRODUCT USED FOR UNKNOWN INDICATION
     Dosage: UNK
     Dates: start: 20070101, end: 20080101
  2. PEPCID [Concomitant]
     Indication: DYSPEPSIA
  3. SYNTHROID [Concomitant]
     Indication: HYPOTHYROIDISM
     Dosage: UNK
     Dates: start: 20010101

REACTIONS (10)
  - CHOLELITHIASIS [None]
  - EMOTIONAL DISTRESS [None]
  - DEEP VEIN THROMBOSIS [None]
  - PAIN [None]
  - SWELLING [None]
  - DISCOMFORT [None]
  - CHOLECYSTITIS CHRONIC [None]
  - THROMBOSIS [None]
  - ABDOMINAL PAIN [None]
  - ANXIETY [None]
